FAERS Safety Report 23276743 (Version 2)
Quarter: 2023Q4

REPORT INFORMATION
  Report Type: Spontaneous
  Country: CA (occurrence: CA)
  Receive Date: 20231208
  Receipt Date: 20231218
  Transmission Date: 20240110
  Serious: Yes (Hospitalization)
  Sender: FDA-Public Use
  Company Number: US-Emergent Biosolutions-23000527

PATIENT
  Age: 72 Year
  Sex: Female

DRUGS (16)
  1. NARCAN [Suspect]
     Active Substance: NALOXONE HYDROCHLORIDE
     Indication: Product used for unknown indication
     Dosage: 4 MILLIGRAM (BOTH DOSES)
     Route: 045
     Dates: start: 20231125, end: 20231125
  2. HYDROMORPHONE [Concomitant]
     Active Substance: HYDROMORPHONE
     Indication: Back pain
     Dosage: UNK
     Route: 065
  3. COREG [Concomitant]
     Active Substance: CARVEDILOL
     Dosage: UNK
     Route: 065
  4. ALTACE [Concomitant]
     Active Substance: RAMIPRIL
     Dosage: UNK
     Route: 065
  5. LASIX [Concomitant]
     Active Substance: FUROSEMIDE
     Dosage: UNK
     Route: 065
  6. SPIRONOLACTONE [Concomitant]
     Active Substance: SPIRONOLACTONE
     Dosage: UNK
     Route: 065
  7. DIGOXIN [Concomitant]
     Active Substance: DIGOXIN
     Dosage: UNK
     Route: 065
  8. ASPIRIN [Concomitant]
     Active Substance: ASPIRIN
     Dosage: UNK
     Route: 065
  9. COUMADIN [Concomitant]
     Active Substance: WARFARIN SODIUM
     Dosage: UNK
     Route: 065
  10. VITAMIN B12 [Concomitant]
     Active Substance: CYANOCOBALAMIN
     Dosage: UNK
     Route: 065
  11. CRESTOR [Concomitant]
     Active Substance: ROSUVASTATIN CALCIUM
     Dosage: UNK
     Route: 065
  12. NITROGLYCERIN [Concomitant]
     Active Substance: NITROGLYCERIN
     Dosage: SPRAY
     Route: 065
  13. PANTOPRAZOLE SODIUM [Concomitant]
     Active Substance: PANTOPRAZOLE SODIUM
     Dosage: UNK
     Route: 065
  14. PRIMIDONE [Concomitant]
     Active Substance: PRIMIDONE
     Dosage: UNK
     Route: 065
  15. PREGABALIN [Concomitant]
     Active Substance: PREGABALIN
     Dosage: UNK
     Route: 065
  16. RIVOTRIL [Concomitant]
     Active Substance: CLONAZEPAM
     Route: 065

REACTIONS (4)
  - Loss of consciousness [Recovered/Resolved]
  - Headache [Not Recovered/Not Resolved]
  - Product use complaint [Unknown]
  - Unintentional use for unapproved indication [Unknown]

NARRATIVE: CASE EVENT DATE: 20231101
